FAERS Safety Report 9008334 (Version 1)
Quarter: 2012Q4

REPORT INFORMATION
  Report Type: Spontaneous
  Country: US (occurrence: None)
  Receive Date: 20121227
  Receipt Date: 20121227
  Transmission Date: 20130627
  Serious: Yes (Other)
  Sender: FDA-Public Use
  Company Number: 2523595-2012-00072

PATIENT
  Age: 63 Year
  Sex: Female
  Weight: 69.9 kg

DRUGS (2)
  1. UVADEX [Suspect]
     Indication: CUTANEOUS T-CELL LYMPHOMA
     Dates: start: 20121204
  2. UVADEX [Suspect]
     Indication: CUTANEOUS T-CELL LYMPHOMA
     Dates: start: 20121205

REACTIONS (4)
  - Drug ineffective [None]
  - Incorrect drug administration duration [None]
  - Mycosis fungoides [None]
  - Condition aggravated [None]
